FAERS Safety Report 13456539 (Version 1)
Quarter: 2017Q2

REPORT INFORMATION
  Report Type: Spontaneous
  Country: US (occurrence: US)
  Receive Date: 20170418
  Receipt Date: 20170418
  Transmission Date: 20170830
  Serious: No
  Sender: FDA-Public Use
  Company Number: US-ELI_LILLY_AND_COMPANY-US201704005637

PATIENT
  Age: 52 Year
  Sex: Female

DRUGS (19)
  1. TRULICITY [Suspect]
     Active Substance: DULAGLUTIDE
     Indication: TYPE 2 DIABETES MELLITUS
     Dosage: 1.5 MG, UNKNOWN
     Route: 065
  2. LISINOPRIL. [Concomitant]
     Active Substance: LISINOPRIL
  3. METFORMIN [Concomitant]
     Active Substance: METFORMIN HYDROCHLORIDE
  4. ADVAIR HFA [Concomitant]
     Active Substance: FLUTICASONE PROPIONATE\SALMETEROL XINAFOATE
  5. MOBIC [Concomitant]
     Active Substance: MELOXICAM
  6. MONTELUKAST [Concomitant]
     Active Substance: MONTELUKAST SODIUM
  7. ASPIRIN 81 [Concomitant]
     Active Substance: ASPIRIN
  8. CARAFATE [Concomitant]
     Active Substance: SUCRALFATE
  9. CALCIUM [Concomitant]
     Active Substance: CALCIUM
     Dosage: UNK
  10. DRISDOL [Concomitant]
     Active Substance: ERGOCALCIFEROL
  11. EUFLEXXA [Concomitant]
     Active Substance: HYALURONATE SODIUM
  12. LINZESS [Concomitant]
     Active Substance: LINACLOTIDE
  13. MIRALAX [Concomitant]
     Active Substance: POLYETHYLENE GLYCOL 3350
  14. HUMALOG [Concomitant]
     Active Substance: INSULIN LISPRO
  15. SUMATRIPTAN. [Concomitant]
     Active Substance: SUMATRIPTAN
  16. LEVEMIR [Concomitant]
     Active Substance: INSULIN DETEMIR
  17. TRIAMCINOLONE [Concomitant]
     Active Substance: TRIAMCINOLONE
  18. SIMVASTATIN. [Concomitant]
     Active Substance: SIMVASTATIN
  19. PROTONIX                           /00661201/ [Concomitant]
     Active Substance: OMEPRAZOLE

REACTIONS (1)
  - Gastrooesophageal reflux disease [Recovered/Resolved]

NARRATIVE: CASE EVENT DATE: 20170413
